FAERS Safety Report 8824924 (Version 1)
Quarter: 2012Q4

REPORT INFORMATION
  Report Type: 
  Country: US (occurrence: US)
  Receive Date: 20121004
  Receipt Date: 20121004
  Transmission Date: 20130627
  Serious: No
  Sender: FDA-Public Use
  Company Number: US-009507513-1209USA009480

PATIENT
  Sex: Male
  Weight: 99.77 kg

DRUGS (2)
  1. MIRALAX [Suspect]
     Indication: CONSTIPATION
     Dosage: 8.5 g, qd
     Route: 048
     Dates: start: 201010
  2. CENTRUM SILVER [Concomitant]
     Indication: PRODUCT USED FOR UNKNOWN INDICATION
     Dosage: UNK, qd

REACTIONS (4)
  - Diarrhoea [Not Recovered/Not Resolved]
  - Underdose [Unknown]
  - Incorrect drug administration duration [Unknown]
  - No adverse event [Unknown]
